FAERS Safety Report 5861847-8 (Version None)
Quarter: 2008Q3

REPORT INFORMATION
  Report Type: 
  Country: None (occurrence: None)
  Receive Date: 20080827
  Receipt Date: 20080716
  Transmission Date: 20090109
  Serious: No
  Sender: FDA-Public Use
  Company Number: US-ABBOTT-08P-163-0462921-00

PATIENT
  Sex: Male
  Weight: 74.91 kg

DRUGS (5)
  1. NIASPAN [Suspect]
     Indication: HIGH DENSITY LIPOPROTEIN DECREASED
     Route: 048
     Dates: start: 20080607, end: 20080607
  2. CLOPIDOGREL [Concomitant]
     Indication: CARDIAC DISORDER
     Route: 048
  3. DIOCAN [Concomitant]
     Indication: CARDIAC DISORDER
     Route: 048
  4. ROSUVASTATIN [Concomitant]
     Indication: CARDIAC DISORDER
     Route: 048
  5. PANTOPRAZOLE [Concomitant]
     Indication: CARDIAC DISORDER
     Route: 048

REACTIONS (1)
  - FLUSHING [None]
